FAERS Safety Report 6764649-3 (Version None)
Quarter: 2010Q2

REPORT INFORMATION
  Report Type: 
  Country: None (occurrence: None)
  Receive Date: 20100609
  Receipt Date: 20100502
  Transmission Date: 20101027
  Serious: No
  Sender: FDA-Public Use
  Company Number: 2010010650

PATIENT
  Age: 2 Year
  Sex: Male
  Weight: 14.5151 kg

DRUGS (1)
  1. CHILDREN'S ZYRTEC ALLERGY [Suspect]
     Indication: HYPERSENSITIVITY
     Dosage: 1/2 TSP ONCE, ORAL
     Route: 048
     Dates: start: 20100430, end: 20100501

REACTIONS (2)
  - HYPERSOMNIA [None]
  - PRODUCT QUALITY ISSUE [None]
